FAERS Safety Report 19211164 (Version 1)
Quarter: 2021Q2

REPORT INFORMATION
  Report Type: Spontaneous
  Country: US (occurrence: US)
  Receive Date: 20210503
  Receipt Date: 20210503
  Transmission Date: 20210717
  Serious: No
  Sender: FDA-Public Use
  Company Number: None

PATIENT
  Age: 56 Year
  Sex: Female

DRUGS (1)
  1. MYCOPHENOLATE MOF TAB 500MG [Suspect]
     Active Substance: MYCOPHENOLATE MOFETIL
     Dosage: OTHER ?
     Route: 048
     Dates: start: 20210503

REACTIONS (2)
  - Pancreatitis [None]
  - Dyspnoea [None]

NARRATIVE: CASE EVENT DATE: 20210503
